FAERS Safety Report 9417099 (Version 3)
Quarter: 2013Q3

REPORT INFORMATION
  Report Type: Spontaneous
  Country: FR (occurrence: None)
  Receive Date: 20130722
  Receipt Date: 20130819
  Transmission Date: 20140515
  Serious: Yes (Hospitalization)
  Sender: FDA-Public Use
  Company Number: ACO_37427_2013

PATIENT
  Age: 58 Year
  Sex: Female

DRUGS (4)
  1. FAMPYRA [Suspect]
     Indication: GAIT DISTURBANCE
     Route: 048
     Dates: start: 20130521
  2. GINKOR [Concomitant]
  3. DICETEL [Concomitant]
  4. HAVLANE [Concomitant]

REACTIONS (1)
  - Cerebral haematoma [None]
